FAERS Safety Report 6683035-8 (Version None)
Quarter: 2010Q2

REPORT INFORMATION
  Report Type: 
  Country: None (occurrence: None)
  Receive Date: 20100415
  Receipt Date: 20100406
  Transmission Date: 20101027
  Serious: Yes (Death)
  Sender: FDA-Public Use
  Company Number: BE-ALLERGAN-1004368US

PATIENT

DRUGS (1)
  1. BOTOX [Suspect]
     Indication: HYPERTONIC BLADDER
     Dosage: UNK
     Route: 030

REACTIONS (2)
  - DEATH [None]
  - WRONG TECHNIQUE IN DRUG USAGE PROCESS [None]
